FAERS Safety Report 18019214 (Version 1)
Quarter: 2020Q3

REPORT INFORMATION
  Report Type: Spontaneous
  Country: US (occurrence: US)
  Receive Date: 20200713
  Receipt Date: 20200713
  Transmission Date: 20201103
  Serious: No
  Sender: FDA-Public Use
  Company Number: None

PATIENT
  Age: 3 Year
  Sex: Male
  Weight: 16.65 kg

DRUGS (5)
  1. FLINSTONES GUMMY MULTIVITAMIN [Concomitant]
  2. CBD GUMMY 3MG [Concomitant]
  3. RENEW LIFE PROBIOTIC [Concomitant]
  4. MONTELUKAST SODIUM 4 MG USP [Suspect]
     Active Substance: MONTELUKAST SODIUM
     Indication: MULTIPLE ALLERGIES
     Dosage: ?          QUANTITY:1 TABLET(S);?
     Route: 048
     Dates: start: 20190201, end: 20200713
  5. MONTELUKAST SODIUM 4 MG USP [Suspect]
     Active Substance: MONTELUKAST SODIUM
     Indication: COUGH
     Dosage: ?          QUANTITY:1 TABLET(S);?
     Route: 048
     Dates: start: 20190201, end: 20200713

REACTIONS (10)
  - Illness [None]
  - Photopsia [None]
  - Sleep disorder [None]
  - Screaming [None]
  - Ear infection [None]
  - Crying [None]
  - Hallucination, visual [None]
  - Abnormal behaviour [None]
  - Rhinorrhoea [None]
  - Aggression [None]

NARRATIVE: CASE EVENT DATE: 20191201
